FAERS Safety Report 8560845-3 (Version None)
Quarter: 2012Q3

REPORT INFORMATION
  Report Type: 
  Country: None (occurrence: None)
  Receive Date: 20120727
  Receipt Date: 20120727
  Transmission Date: 20120928
  Serious: Yes (Hospitalization)
  Sender: FDA-Public Use
  Company Number: None

PATIENT
  Age: 53 Year
  Sex: Male
  Weight: 99.5 kg

DRUGS (9)
  1. DILAUDID [Suspect]
     Indication: PROCEDURAL PAIN
     Dosage: 2MG ONCE IV RECENT
     Route: 042
  2. PROCARDIN XL [Concomitant]
  3. COLCHICINE [Concomitant]
  4. INSULIN [Concomitant]
  5. PHOSLO [Concomitant]
  6. ASPIRIN [Concomitant]
  7. SENSIPAR [Concomitant]
  8. ATENOLOL [Concomitant]
  9. PARACHOL [Concomitant]

REACTIONS (4)
  - CARDIAC ARREST [None]
  - BLOOD PRESSURE DECREASED [None]
  - CARDIO-RESPIRATORY ARREST [None]
  - PULSE ABSENT [None]
